FAERS Safety Report 23493777 (Version 1)
Quarter: 2024Q1

REPORT INFORMATION
  Report Type: Spontaneous
  Country: CN (occurrence: CN)
  Receive Date: 20240207
  Receipt Date: 20240207
  Transmission Date: 20240409
  Serious: Yes (Hospitalization, Other)
  Sender: FDA-Public Use
  Company Number: CN-BAYER-2024A019915

PATIENT
  Age: 77 Year
  Sex: Female
  Weight: 73 kg

DRUGS (6)
  1. GLUCOBAY [Interacting]
     Active Substance: ACARBOSE
     Indication: Type 2 diabetes mellitus
     Dosage: 0.1 G, BID
     Route: 048
     Dates: start: 20231201, end: 20240201
  2. METFORMIN HYDROCHLORIDE [Interacting]
     Active Substance: METFORMIN HYDROCHLORIDE
     Indication: Type 2 diabetes mellitus
     Dosage: 0.5 G, BID
     Route: 048
     Dates: start: 20231201, end: 20240201
  3. DAPAGLIFLOZIN [Interacting]
     Active Substance: DAPAGLIFLOZIN
     Indication: Type 2 diabetes mellitus
     Dosage: 10 MG, QD
     Route: 048
     Dates: start: 20231201, end: 20240201
  4. AMLODIPINE\VALSARTAN [Concomitant]
     Active Substance: AMLODIPINE\VALSARTAN
     Indication: Hypertension
     Dosage: UNK
     Dates: start: 20240201
  5. ATORVASTATIN [Concomitant]
     Active Substance: ATORVASTATIN
     Indication: Lipids abnormal
     Dosage: UNK
     Dates: start: 20240201
  6. MIDODRINE [Concomitant]
     Active Substance: MIDODRINE
     Indication: Bladder sphincter atony
     Dosage: UNK
     Dates: start: 20240201

REACTIONS (7)
  - Hypoglycaemic coma [Recovering/Resolving]
  - Asthenia [Recovering/Resolving]
  - Slow response to stimuli [None]
  - Incoherent [None]
  - Somnolence [None]
  - Blood pH increased [None]
  - Respiratory rate increased [None]

NARRATIVE: CASE EVENT DATE: 20240201
